FAERS Safety Report 7501761-5 (Version None)
Quarter: 2011Q2

REPORT INFORMATION
  Report Type: 
  Country: None (occurrence: None)
  Receive Date: 20110523
  Receipt Date: 20110523
  Transmission Date: 20111010
  Serious: Yes (Hospitalization)
  Sender: FDA-Public Use
  Company Number: None

PATIENT
  Age: 69 Year
  Sex: Male
  Weight: 89.1 kg

DRUGS (13)
  1. ASPIRIN [Suspect]
     Indication: CORONARY ARTERY DISEASE
     Dosage: 81MG QPM PO  CHRONIC
     Route: 048
  2. ACTOS [Concomitant]
  3. ZOCOR [Concomitant]
  4. GLYBURIDE [Concomitant]
  5. PROPRANOLOL [Concomitant]
  6. NIASPAN [Concomitant]
  7. MIRAPEX [Concomitant]
  8. PLAVIX [Suspect]
     Indication: CORONARY ARTERY DISEASE
     Dosage: 75MG QAM PO CHRONIC
     Route: 048
  9. CILOSTAZOL [Concomitant]
  10. PROTONIX [Concomitant]
  11. AMLODIPINE BESYLATE AND BENAZEPRIL HCL [Concomitant]
  12. OMACOR [Concomitant]
  13. TYLENOL-500 [Concomitant]

REACTIONS (5)
  - HAEMORRHAGIC ANAEMIA [None]
  - GASTRIC DISORDER [None]
  - GASTROINTESTINAL TRACT IRRITATION [None]
  - VARICES OESOPHAGEAL [None]
  - GASTROINTESTINAL HAEMORRHAGE [None]
